FAERS Safety Report 8301355-8 (Version None)
Quarter: 2012Q2

REPORT INFORMATION
  Report Type: 
  Country: None (occurrence: None)
  Receive Date: 20120417
  Receipt Date: 20120403
  Transmission Date: 20120825
  Serious: Yes (Death)
  Sender: FDA-Public Use
  Company Number: 1253160

PATIENT
  Age: 16 Year
  Sex: Male

DRUGS (7)
  1. VINCRISTINE SULFATE [Suspect]
     Indication: PRODUCT USED FOR UNKNOWN INDICATION
     Dosage: 2 MG, SINGLE INTAKE INTRAVENOUS DRIP
     Route: 041
     Dates: start: 20120204
  2. CYCLOPHOSPHAMIDE [Suspect]
     Indication: PRODUCT USED FOR UNKNOWN INDICATION
     Dosage: 432 MG MILLIGRAM(S)(1 DAY) INTRAVENOUS NOT OTHERWISE SPECIFIED)
     Route: 042
     Dates: start: 20120205, end: 20120207
  3. METHOTREXATE [Suspect]
     Indication: PRODUCT USED FOR UNKNOWN INDICATION
     Dosage: 5193 MG, SINGLE INTAKE, INTRAVENOUS DRIP, 15 MG MILLIGRAM(S)   INTRATHECAL
     Route: 041
     Dates: start: 20120204
  4. DOXORUBICIN HCL [Suspect]
     Indication: PRODUCT USED FOR UNKNOWN INDICATION
     Dosage: 104 MG, SINGLE INTAKE INTRAVENOUS NOT OTHERWISE SPECIFIED)
     Route: 042
     Dates: start: 20120205
  5. (MABTHERA) [Suspect]
     Indication: PRODUCT USED FOR UNKNOWN INDICATION
     Dosage: 650 MG, SINGLE INTAKE INTRAVENOUS NOT OTHERWISE SPECIFIED)
     Route: 042
     Dates: start: 20120202
  6. (SOLUPRED /00016201/) [Concomitant]
  7. (LASILIX	/00032601/) [Concomitant]

REACTIONS (7)
  - DECREASED APPETITE [None]
  - MUCOSAL INFLAMMATION [None]
  - HYPERTHERMIA [None]
  - LEUKOCYTOCLASTIC VASCULITIS [None]
  - GENERAL PHYSICAL CONDITION ABNORMAL [None]
  - TOXIC EPIDERMAL NECROLYSIS [None]
  - HEPATIC FAILURE [None]
